FAERS Safety Report 6974689-7 (Version None)
Quarter: 2010Q3

REPORT INFORMATION
  Report Type: 
  Country: None (occurrence: None)
  Receive Date: 20100909
  Receipt Date: 20100909
  Transmission Date: 20110219
  Serious: Yes (Other)
  Sender: FDA-Public Use
  Company Number: None

PATIENT
  Age: 18 Month
  Sex: Female
  Weight: 10 kg

DRUGS (2)
  1. LEVETIRACETAM [Suspect]
     Indication: CONVULSION
     Dosage: 100MG/1ML
     Dates: start: 20100401
  2. LEVETIRACETAM [Suspect]
     Indication: TUBEROUS SCLEROSIS
     Dosage: 100MG/1ML
     Dates: start: 20100401

REACTIONS (1)
  - CONVULSION [None]
